FAERS Safety Report 8177781-7 (Version None)
Quarter: 2012Q1

REPORT INFORMATION
  Report Type: 
  Country: None (occurrence: None)
  Receive Date: 20120301
  Receipt Date: 20120216
  Transmission Date: 20120608
  Serious: Yes (Hospitalization, Other)
  Sender: FDA-Public Use
  Company Number: CA-ROCHE-1042640

PATIENT
  Sex: Female

DRUGS (7)
  1. ALVESCO [Concomitant]
  2. PREDNISONE [Concomitant]
  3. SPIRIVA [Concomitant]
  4. SINGULAIR [Concomitant]
  5. VENTOLIN [Concomitant]
  6. XOLAIR [Suspect]
     Indication: ASTHMA
     Route: 058
     Dates: start: 20111012
  7. ADVAIR DISKUS 100/50 [Concomitant]

REACTIONS (8)
  - HEADACHE [None]
  - OROPHARYNGEAL PAIN [None]
  - ASTHMA [None]
  - MALAISE [None]
  - ABDOMINAL PAIN UPPER [None]
  - NASOPHARYNGITIS [None]
  - COUGH [None]
  - DYSPEPSIA [None]
